FAERS Safety Report 19165547 (Version 3)
Quarter: 2021Q3

REPORT INFORMATION
  Report Type: Spontaneous
  Country: US (occurrence: US)
  Receive Date: 20210421
  Receipt Date: 20210913
  Transmission Date: 20211014
  Serious: Yes (Other)
  Sender: FDA-Public Use
  Company Number: US-ELI_LILLY_AND_COMPANY-US202104005257

PATIENT
  Age: 60 Year
  Sex: Female

DRUGS (2)
  1. TOUJEO [Concomitant]
     Active Substance: INSULIN GLARGINE
     Indication: BLOOD GLUCOSE INCREASED
  2. TRULICITY [Suspect]
     Active Substance: DULAGLUTIDE
     Indication: PRODUCT USED FOR UNKNOWN INDICATION
     Dosage: 1.5 MG, UNKNOWN
     Route: 065
     Dates: start: 2019, end: 20210212

REACTIONS (11)
  - Blood glucose increased [Unknown]
  - Gastric ulcer [Unknown]
  - Cerebrovascular accident [Unknown]
  - Dental caries [Unknown]
  - Memory impairment [Unknown]
  - Tooth loss [Unknown]
  - Bone disorder [Unknown]
  - Mobility decreased [Unknown]
  - Head discomfort [Unknown]
  - Upper limb fracture [Unknown]
  - Blood glucose decreased [Unknown]

NARRATIVE: CASE EVENT DATE: 2018
